FAERS Safety Report 20077095 (Version 1)
Quarter: 2021Q4

REPORT INFORMATION
  Report Type: Spontaneous
  Country: US (occurrence: None)
  Receive Date: 20211116
  Receipt Date: 20211116
  Transmission Date: 20220303
  Serious: Yes (Hospitalization, Other)
  Sender: FDA-Public Use
  Company Number: None

PATIENT
  Age: 70 Year
  Sex: Male

DRUGS (3)
  1. ATORVASTATIN [Suspect]
     Active Substance: ATORVASTATIN
     Indication: Blood cholesterol increased
     Dosage: OTHER QUANTITY : 1 TABLET(S);?FREQUENCY : AT BEDTIME;?
     Route: 048
     Dates: start: 20210831, end: 20210916
  2. METOPROLOL [Concomitant]
     Active Substance: METOPROLOL
  3. Muti-vitamin [Concomitant]

REACTIONS (2)
  - Cholelithiasis [None]
  - Pancreatitis [None]

NARRATIVE: CASE EVENT DATE: 20210917
